FAERS Safety Report 14937116 (Version 1)
Quarter: 2018Q2

REPORT INFORMATION
  Report Type: Spontaneous
  Country: US (occurrence: US)
  Receive Date: 20180525
  Receipt Date: 20180525
  Transmission Date: 20180711
  Serious: No
  Sender: FDA-Public Use
  Company Number: US-DRREDDYS-USA/USA/17/0094974

PATIENT
  Age: 34 Year
  Sex: Female

DRUGS (9)
  1. QUETIAPINE FUMARATE TABLETS [Suspect]
     Active Substance: QUETIAPINE FUMARATE
     Indication: SCHIZOPHRENIA
  2. CLONAZEPAM. [Suspect]
     Active Substance: CLONAZEPAM
     Dosage: 0.5 MG EACH MORNING AND 1 MG EACH EVENING
     Route: 065
  3. QUETIAPINE FUMARATE TABLETS [Suspect]
     Active Substance: QUETIAPINE FUMARATE
     Indication: GENERALISED ANXIETY DISORDER
  4. FLUOXETINE [Suspect]
     Active Substance: FLUOXETINE HYDROCHLORIDE
     Indication: PANIC DISORDER
     Route: 065
  5. FLUOXETINE [Suspect]
     Active Substance: FLUOXETINE HYDROCHLORIDE
     Indication: GENERALISED ANXIETY DISORDER
  6. FLUOXETINE [Suspect]
     Active Substance: FLUOXETINE HYDROCHLORIDE
     Indication: SCHIZOPHRENIA
  7. OLANZAPINE TABLETS [Suspect]
     Active Substance: OLANZAPINE
     Indication: ANXIETY
     Route: 065
  8. QUETIAPINE FUMARATE TABLETS [Suspect]
     Active Substance: QUETIAPINE FUMARATE
     Indication: PANIC DISORDER
     Dosage: TITRATED DOSE
     Route: 065
  9. CLONAZEPAM. [Suspect]
     Active Substance: CLONAZEPAM
     Indication: ANXIETY
     Route: 065

REACTIONS (2)
  - Sedation [Unknown]
  - Drug ineffective [Unknown]
